FAERS Safety Report 23314781 (Version 1)
Quarter: 2023Q4

REPORT INFORMATION
  Report Type: Spontaneous
  Country: US (occurrence: None)
  Receive Date: 20231218
  Receipt Date: 20231218
  Transmission Date: 20240110
  Serious: No
  Sender: FDA-Public Use
  Company Number: None

PATIENT
  Sex: Female

DRUGS (2)
  1. OTEZLA [Suspect]
     Active Substance: APREMILAST
     Indication: Psoriatic arthropathy
     Dosage: 30MG TWICE DAILY ORAL
     Route: 048
     Dates: start: 201806
  2. CIMZIA 200MG PF SYR (2/BOX) [Concomitant]

REACTIONS (1)
  - Drug ineffective [None]
